FAERS Safety Report 24624850 (Version 1)
Quarter: 2024Q4

REPORT INFORMATION
  Report Type: Spontaneous
  Country: AT (occurrence: AT)
  Receive Date: 20241115
  Receipt Date: 20241115
  Transmission Date: 20250114
  Serious: Yes (Other)
  Sender: TEVA
  Company Number: AT-GRUNENTHAL-2024-126481

PATIENT
  Age: 60 Year
  Sex: Male

DRUGS (1)
  1. ROSUVASTATIN [Suspect]
     Active Substance: ROSUVASTATIN
     Indication: Product used for unknown indication
     Dosage: UNK UNK, 2/WEEK
     Route: 065

REACTIONS (2)
  - Haematochezia [Unknown]
  - Myalgia [Unknown]
